FAERS Safety Report 15275814 (Version 2)
Quarter: 2018Q3

REPORT INFORMATION
  Report Type: Not Available
  Country: US (occurrence: US)
  Receive Date: 20180814
  Receipt Date: 20180918
  Transmission Date: 20181010
  Serious: Yes (Hospitalization)
  Sender: FDA-Public Use
  Company Number: US-NEUROCRINE BIOSCIENCES INC.-2018NBI02333

PATIENT
  Age: 57 Year
  Sex: Female

DRUGS (26)
  1. ASPIRIN 81 [Concomitant]
     Active Substance: ASPIRIN
     Dosage: DAILY
  2. FUROSEMIDE. [Concomitant]
     Active Substance: FUROSEMIDE
     Dosage: DAILY
  3. VALACYCLOVIR [Concomitant]
     Active Substance: VALACYCLOVIR HYDROCHLORIDE
     Dosage: AS NEEDED (PRN)
  4. INGREZZA [Suspect]
     Active Substance: VALBENAZINE
     Route: 048
     Dates: start: 20171104
  5. LYRICA [Concomitant]
     Active Substance: PREGABALIN
     Indication: FIBROMYALGIA
     Route: 048
     Dates: start: 20171116
  6. RIZATRIPTAN. [Concomitant]
     Active Substance: RIZATRIPTAN
     Dosage: 10 TABS TO LAST 30 DAYS
  7. XARELTO [Concomitant]
     Active Substance: RIVAROXABAN
     Dosage: DAILY
     Dates: start: 201809
  8. INGREZZA [Suspect]
     Active Substance: VALBENAZINE
     Indication: TARDIVE DYSKINESIA
     Route: 048
     Dates: start: 20171028, end: 20171103
  9. XANAX [Concomitant]
     Active Substance: ALPRAZOLAM
     Indication: ANXIETY
  10. AMLODIPINE [Concomitant]
     Active Substance: AMLODIPINE BESYLATE
     Dosage: DAILY
  11. METFORMIN ER [Concomitant]
     Active Substance: METFORMIN HYDROCHLORIDE
     Dosage: DAILY
  12. INGREZZA [Suspect]
     Active Substance: VALBENAZINE
     Dates: start: 20171113, end: 20180729
  13. FLUOXETINE [Concomitant]
     Active Substance: FLUOXETINE HYDROCHLORIDE
     Route: 048
     Dates: start: 20180122
  14. INGREZZA [Suspect]
     Active Substance: VALBENAZINE
     Dates: start: 20171106, end: 20171112
  15. FETZIMA [Suspect]
     Active Substance: LEVOMILNACIPRAN HYDROCHLORIDE
     Indication: MAJOR DEPRESSION
  16. COGENTIN [Concomitant]
     Active Substance: BENZTROPINE MESYLATE
     Indication: TREMOR
     Dosage: 1 MG 1/2 AM AND 1 EHS
     Route: 048
     Dates: start: 20180413
  17. BACLOFEN. [Concomitant]
     Active Substance: BACLOFEN
  18. KLOR?CON [Concomitant]
     Active Substance: POTASSIUM CHLORIDE
     Dosage: 10 MEQ DAILY
  19. XARELTO [Concomitant]
     Active Substance: RIVAROXABAN
     Dates: start: 20180828, end: 201809
  20. MELATONIN [Concomitant]
     Active Substance: MELATONIN
     Dosage: HOUR OF SLEEP (HS)
  21. FETZIMA [Suspect]
     Active Substance: LEVOMILNACIPRAN HYDROCHLORIDE
     Indication: POST-TRAUMATIC STRESS DISORDER
     Route: 048
     Dates: start: 20180122, end: 2018
  22. FETZIMA [Suspect]
     Active Substance: LEVOMILNACIPRAN HYDROCHLORIDE
     Indication: ANXIETY
  23. XANAX [Concomitant]
     Active Substance: ALPRAZOLAM
     Indication: POST-TRAUMATIC STRESS DISORDER
     Route: 048
     Dates: start: 20130710
  24. TOUJEO SOLOSTAR INSULIN [Concomitant]
  25. ATORVASTATIN [Concomitant]
     Active Substance: ATORVASTATIN
     Dosage: DAILY
  26. CLONIDINE. [Concomitant]
     Active Substance: CLONIDINE

REACTIONS (6)
  - Fall [Recovered/Resolved]
  - Mental status changes [Recovered/Resolved with Sequelae]
  - Drug interaction [Unknown]
  - Myoclonus [Recovered/Resolved with Sequelae]
  - Memory impairment [Not Recovered/Not Resolved]
  - Serotonin syndrome [Recovered/Resolved with Sequelae]

NARRATIVE: CASE EVENT DATE: 201807
